FAERS Safety Report 5011375-7 (Version None)
Quarter: 2006Q2

REPORT INFORMATION
  Report Type: 
  Country: None (occurrence: None)
  Receive Date: 20060404
  Receipt Date: 20051130
  Transmission Date: 20061013
  Serious: No
  Sender: FDA-Public Use
  Company Number: USA050598499

PATIENT
  Age: 28 Year
  Sex: Male
  Weight: 83.9 kg

DRUGS (1)
  1. CYMBALTA [Suspect]
     Indication: ANXIETY
     Dosage: SEE IMAGE

REACTIONS (3)
  - PENILE DISCHARGE [None]
  - URINARY HESITATION [None]
  - URINARY RETENTION [None]
